FAERS Safety Report 11191479 (Version 1)
Quarter: 2015Q2

REPORT INFORMATION
  Report Type: Spontaneous
  Country: PH (occurrence: PH)
  Receive Date: 20150616
  Receipt Date: 20150616
  Transmission Date: 20150821
  Serious: Yes (Hospitalization, Other)
  Sender: FDA-Public Use
  Company Number: PH-009507513-1506PHL006691

PATIENT
  Age: 53 Year
  Sex: Female

DRUGS (1)
  1. JANUMET [Suspect]
     Active Substance: METFORMIN HYDROCHLORIDE\SITAGLIPTIN PHOSPHATE
     Indication: DIABETES MELLITUS
     Dosage: 50/500
     Route: 048
     Dates: start: 2014

REACTIONS (2)
  - Aneurysm [Unknown]
  - Aphasia [Unknown]

NARRATIVE: CASE EVENT DATE: 2015
